FAERS Safety Report 18314300 (Version 2)
Quarter: 2020Q4

REPORT INFORMATION
  Report Type: Spontaneous
  Country: US (occurrence: US)
  Receive Date: 20200925
  Receipt Date: 20201116
  Transmission Date: 20210113
  Serious: No
  Sender: FDA-Public Use
  Company Number: US-ELI_LILLY_AND_COMPANY-US202009008536

PATIENT
  Age: 86 Year
  Sex: Male

DRUGS (1)
  1. HUMATROPE [Suspect]
     Active Substance: SOMATROPIN
     Indication: OFF LABEL USE
     Dosage: 20 U, UNKNOWN
     Route: 065

REACTIONS (1)
  - Intentional product misuse [Unknown]
